FAERS Safety Report 7150661-1 (Version None)
Quarter: 2010Q4

REPORT INFORMATION
  Report Type: 
  Country: None (occurrence: None)
  Receive Date: 20101210
  Receipt Date: 20101206
  Transmission Date: 20110411
  Serious: Yes (Other)
  Sender: FDA-Public Use
  Company Number: US-JNJFOC-20101202815

PATIENT
  Sex: Female
  Weight: 63.5 kg

DRUGS (4)
  1. TOPAMAX [Suspect]
     Indication: MIGRAINE PROPHYLAXIS
     Route: 048
  2. UNKNOWN MEDICATION [Suspect]
     Indication: THYROID DISORDER
     Route: 065
  3. VERAPAMIL [Concomitant]
     Indication: MIGRAINE PROPHYLAXIS
     Route: 048
  4. IMITREX [Concomitant]
     Indication: MIGRAINE PROPHYLAXIS
     Dosage: AS NEEDED
     Route: 048

REACTIONS (3)
  - CHILLS [None]
  - DRY SKIN [None]
  - THYROID DISORDER [None]
